FAERS Safety Report 13141865 (Version 1)
Quarter: 2017Q1

REPORT INFORMATION
  Report Type: Spontaneous
  Country: IN (occurrence: IN)
  Receive Date: 20170124
  Receipt Date: 20170124
  Transmission Date: 20170428
  Serious: Yes (Other)
  Sender: FDA-Public Use
  Company Number: IN-CORCEPT THERAPEUTICS INC.-IN-2017CRT000031

PATIENT
  Age: 26 Year
  Sex: Female

DRUGS (2)
  1. MISOPROSTOL. [Suspect]
     Active Substance: MISOPROSTOL
     Indication: ABORTION
     Dosage: UNK
  2. MIFEPRISTONE [Suspect]
     Active Substance: MIFEPRISTONE
     Indication: ABORTION
     Dosage: UNK

REACTIONS (5)
  - Headache [Recovering/Resolving]
  - Vomiting [Unknown]
  - Visual acuity reduced [Recovering/Resolving]
  - Nausea [Unknown]
  - Benign intracranial hypertension [Unknown]
